FAERS Safety Report 10467946 (Version 2)
Quarter: 2014Q3

REPORT INFORMATION
  Report Type: Report from Study
  Country: KR (occurrence: KR)
  Receive Date: 20140922
  Receipt Date: 20140925
  Transmission Date: 20150326
  Serious: Yes (Hospitalization, Other)
  Sender: FDA-Public Use
  Company Number: KR-BAYER-2014-137410

PATIENT
  Age: 76 Year
  Sex: Male

DRUGS (1)
  1. STIVARGA [Suspect]
     Active Substance: REGORAFENIB
     Indication: COLORECTAL CANCER METASTATIC
     Dosage: 4 DF QD
     Route: 048
     Dates: start: 20140818

REACTIONS (3)
  - Blood pressure systolic increased [None]
  - Haemorrhagic cerebral infarction [None]
  - Syncope [None]

NARRATIVE: CASE EVENT DATE: 20140907
